FAERS Safety Report 4883683-1 (Version None)
Quarter: 2006Q1

REPORT INFORMATION
  Report Type: 
  Country: None (occurrence: None)
  Receive Date: 20060118
  Receipt Date: 20050318
  Transmission Date: 20060701
  Serious: Yes (Hospitalization)
  Sender: FDA-Public Use
  Company Number: ES-SANOFI-SYNTHELABO-F01200500440

PATIENT
  Sex: Female

DRUGS (12)
  1. OXALIPLATIN [Suspect]
     Indication: COLORECTAL CANCER
     Route: 042
     Dates: start: 20050308, end: 20050308
  2. FLUOROURACIL [Suspect]
     Dosage: 3000 MG/M2 IN 48 HOURS INFUSION, Q2W
     Route: 042
     Dates: start: 20050308, end: 20050309
  3. FORTISIP [Concomitant]
     Indication: ANOREXIA
     Dosage: 600 ML
     Route: 048
     Dates: start: 20050221, end: 20050309
  4. SERETIDE [Concomitant]
     Dosage: 4 UNIT
     Route: 055
     Dates: start: 20050221, end: 20050309
  5. NAPROSYN [Concomitant]
     Indication: PAIN
     Dosage: 1000 MG
     Route: 048
     Dates: start: 20050221, end: 20050309
  6. FRAXIPARIN [Concomitant]
     Indication: PROPHYLAXIS
     Dosage: 0.3 ML
     Route: 065
     Dates: start: 20050221, end: 20050316
  7. OMEPRAZOLE [Concomitant]
     Indication: PROPHYLAXIS AGAINST GASTROINTESTINAL ULCER
     Dosage: 20 MG
     Route: 048
     Dates: start: 20050221
  8. DUPHALAC [Concomitant]
     Dosage: 20 G
     Route: 065
     Dates: start: 20050221, end: 20050309
  9. SEGURIL [Concomitant]
     Indication: HYPERTENSION
     Dosage: 40 MG
     Route: 048
     Dates: start: 20050221
  10. NOLOTIL [Concomitant]
     Indication: PAIN
     Dosage: 1.725 G
     Route: 048
     Dates: start: 20050226, end: 20050309
  11. CLEXANE [Concomitant]
     Route: 058
     Dates: start: 20050306
  12. COROPRES [Concomitant]
     Indication: HYPERTENSION
     Dates: start: 20050306

REACTIONS (2)
  - ANGINA PECTORIS [None]
  - MYOCARDIAL INFARCTION [None]
